FAERS Safety Report 10368524 (Version 1)
Quarter: 2014Q3

REPORT INFORMATION
  Report Type: Spontaneous
  Country: US (occurrence: US)
  Receive Date: 20140807
  Receipt Date: 20140807
  Transmission Date: 20150326
  Serious: Yes (Death)
  Sender: FDA-Public Use
  Company Number: US-GLAXOSMITHKLINE-A1071069A

PATIENT
  Sex: Male

DRUGS (18)
  1. GABAPENTIN. [Concomitant]
     Active Substance: GABAPENTIN
  2. ATROPINE SULFATE OPHTHALMIC SOLUTION [Concomitant]
  3. TRADJENTA [Concomitant]
     Active Substance: LINAGLIPTIN
  4. ONDANSETRON [Concomitant]
     Active Substance: ONDANSETRON
  5. MORPHINE SULFATE. [Concomitant]
     Active Substance: MORPHINE SULFATE
  6. OMEPRAZOLE. [Concomitant]
     Active Substance: OMEPRAZOLE
  7. GLYBURIDE. [Concomitant]
     Active Substance: GLYBURIDE
  8. ACETAMINOPHEN. [Concomitant]
     Active Substance: ACETAMINOPHEN
  9. LOVASTATIN. [Concomitant]
     Active Substance: LOVASTATIN
  10. BISACODYL SUPPOSITORY [Concomitant]
     Active Substance: BISACODYL
  11. VOTRIENT [Suspect]
     Active Substance: PAZOPANIB HYDROCHLORIDE
     Indication: RENAL CELL CARCINOMA
     Dosage: 800MG PER DAY
     Route: 048
     Dates: start: 20140116, end: 201403
  12. LORAZEPAM. [Concomitant]
     Active Substance: LORAZEPAM
  13. IRON [Concomitant]
     Active Substance: IRON
  14. LORATADINE. [Concomitant]
     Active Substance: LORATADINE
  15. AMLODIPINE [Concomitant]
     Active Substance: AMLODIPINE BESYLATE
  16. PROCHLORPERAZINE. [Concomitant]
     Active Substance: PROCHLORPERAZINE
  17. HALOPERIDOL. [Concomitant]
     Active Substance: HALOPERIDOL
  18. HYDROMORPHONE [Concomitant]
     Active Substance: HYDROMORPHONE

REACTIONS (13)
  - Middle insomnia [Unknown]
  - Convulsion [Unknown]
  - Abdominal pain [Unknown]
  - Nausea [Unknown]
  - Decreased appetite [Unknown]
  - Vomiting [Unknown]
  - Abdominal pain upper [Unknown]
  - Musculoskeletal stiffness [Unknown]
  - Fatigue [Unknown]
  - Death [Fatal]
  - Gastrooesophageal reflux disease [Unknown]
  - Gastric disorder [Unknown]
  - Migraine [Unknown]
